FAERS Safety Report 21638745 (Version 2)
Quarter: 2022Q4

REPORT INFORMATION
  Report Type: Report from Study
  Country: US (occurrence: US)
  Receive Date: 20221124
  Receipt Date: 20221202
  Transmission Date: 20230113
  Serious: Yes (Life-Threatening, Hospitalization, Other)
  Sender: FDA-Public Use
  Company Number: US-PFIZER INC-PV202200109226

PATIENT
  Age: 17 Year
  Sex: Male

DRUGS (10)
  1. TALAZOPARIB [Suspect]
     Active Substance: TALAZOPARIB
     Indication: Ewing^s sarcoma recurrent
     Dosage: 500 MG, 2X/DAY (BID D1)
     Dates: start: 20221109, end: 20221109
  2. TALAZOPARIB [Suspect]
     Active Substance: TALAZOPARIB
     Dosage: 1000 UG, 1X/DAY (QD DAYS 2-6)
     Dates: start: 20221110, end: 20221114
  3. ONIVYDE [Suspect]
     Active Substance: IRINOTECAN HYDROCHLORIDE
     Indication: Ewing^s sarcoma recurrent
     Dosage: 288.1 MG
     Route: 042
     Dates: start: 20221109, end: 20221109
  4. GRANISETRON [Concomitant]
     Active Substance: GRANISETRON
     Indication: Vomiting
     Dosage: UNK
     Route: 048
     Dates: start: 20221108
  5. DIPHENHYDRAMINE [Concomitant]
     Active Substance: DIPHENHYDRAMINE
     Indication: Antiallergic therapy
     Dosage: UNK
     Route: 048
     Dates: start: 20221108
  6. FAMOTIDINE [Concomitant]
     Active Substance: FAMOTIDINE
     Indication: Prophylaxis
     Dosage: UNK
     Route: 048
     Dates: start: 20221109
  7. HYOSCYAMINE [Concomitant]
     Active Substance: HYOSCYAMINE
     Indication: Muscle spasms
     Dosage: UNK
     Route: 048
     Dates: start: 20221121
  8. LOPERAMIDE [Concomitant]
     Active Substance: LOPERAMIDE
     Indication: Diarrhoea
     Dosage: UNK
     Route: 048
     Dates: start: 20221108
  9. ONDANSETRON [Concomitant]
     Active Substance: ONDANSETRON
     Indication: Vomiting
     Dosage: UNK
     Route: 048
     Dates: start: 20221121
  10. CEFIXIME [Concomitant]
     Active Substance: CEFIXIME
     Indication: Prophylaxis
     Dosage: UNK
     Route: 048
     Dates: start: 20221109, end: 20221113

REACTIONS (1)
  - Febrile neutropenia [Unknown]

NARRATIVE: CASE EVENT DATE: 20221120
